FAERS Safety Report 12570103 (Version 3)
Quarter: 2017Q1

REPORT INFORMATION
  Report Type: Spontaneous
  Country: US (occurrence: US)
  Receive Date: 20160719
  Receipt Date: 20170217
  Transmission Date: 20170428
  Serious: Yes (Other)
  Sender: FDA-Public Use
  Company Number: US-TEVA-666664USA

PATIENT
  Age: 45 Year
  Sex: Female

DRUGS (6)
  1. ZECUITY [Suspect]
     Active Substance: SUMATRIPTAN SUCCINATE
     Indication: MIGRAINE
     Route: 062
     Dates: start: 201603
  2. AMBIEN [Concomitant]
     Active Substance: ZOLPIDEM TARTRATE
  3. BOTOX [Concomitant]
     Active Substance: ONABOTULINUMTOXINA
     Indication: MIGRAINE
  4. LEXAPRO [Concomitant]
     Active Substance: ESCITALOPRAM OXALATE
  5. NEXIUM [Concomitant]
     Active Substance: ESOMEPRAZOLE MAGNESIUM
  6. NATURE-THROID [Concomitant]
     Active Substance: THYROID, PORCINE

REACTIONS (14)
  - Application site warmth [Not Recovered/Not Resolved]
  - Application site rash [Recovered/Resolved]
  - Application site irritation [Not Recovered/Not Resolved]
  - Drug effect incomplete [Unknown]
  - Application site papules [Not Recovered/Not Resolved]
  - Application site vesicles [Not Recovered/Not Resolved]
  - Application site burn [Not Recovered/Not Resolved]
  - Neurostimulator implantation [Unknown]
  - Application site paraesthesia [Not Recovered/Not Resolved]
  - Product adhesion issue [Unknown]
  - Application site scar [Not Recovered/Not Resolved]
  - Application site erythema [Not Recovered/Not Resolved]
  - Application site discolouration [Not Recovered/Not Resolved]
  - Application site pruritus [Not Recovered/Not Resolved]

NARRATIVE: CASE EVENT DATE: 201603
